FAERS Safety Report 5110368-9 (Version None)
Quarter: 2006Q3

REPORT INFORMATION
  Report Type: 
  Country: None (occurrence: None)
  Receive Date: 20060908
  Receipt Date: 20060830
  Transmission Date: 20061208
  Serious: Yes (Death, Life-Threatening, Hospitalization)
  Sender: FDA-Public Use
  Company Number: 200610859BYL

PATIENT
  Age: 64 Year
  Sex: Male
  Weight: 64 kg

DRUGS (3)
  1. PLASBUMIN-25 [Suspect]
     Indication: SHOCK
     Dosage: SEE IMAGE
     Route: 041
     Dates: start: 20060613, end: 20060615
  2. PLASBUMIN-25 [Suspect]
     Indication: SHOCK
     Dosage: SEE IMAGE
     Route: 041
     Dates: start: 20060627
  3. RED BLOOD CELLS [Concomitant]

REACTIONS (6)
  - GASTRIC ULCER HAEMORRHAGE [None]
  - HAEMATEMESIS [None]
  - INTERSTITIAL LUNG DISEASE [None]
  - MULTI-ORGAN FAILURE [None]
  - RESPIRATORY DISORDER [None]
  - SHOCK [None]
